FAERS Safety Report 5381873-5 (Version None)
Quarter: 2007Q3

REPORT INFORMATION
  Report Type: 
  Country: None (occurrence: None)
  Receive Date: 20070705
  Receipt Date: 20070619
  Transmission Date: 20080115
  Serious: Yes (Hospitalization)
  Sender: FDA-Public Use
  Company Number: 2007US000226

PATIENT
  Age: 64 Year
  Sex: Female

DRUGS (1)
  1. AMEVIVE [Suspect]
     Indication: PSORIASIS
     Dosage: UNK, UNK, UNK

REACTIONS (7)
  - ARTHRALGIA [None]
  - JOINT SWELLING [None]
  - LEUKOCYTOCLASTIC VASCULITIS [None]
  - SCAB [None]
  - SERUM SICKNESS [None]
  - STEVENS-JOHNSON SYNDROME [None]
  - VIRAL INFECTION [None]
